FAERS Safety Report 5736586-4 (Version None)
Quarter: 2008Q2

REPORT INFORMATION
  Report Type: 
  Country: None (occurrence: None)
  Receive Date: 20080513
  Receipt Date: 20080506
  Transmission Date: 20081010
  Serious: Yes (Other)
  Sender: FDA-Public Use
  Company Number: US-ASTRAZENECA-2008UW07076

PATIENT
  Age: 73 Year
  Sex: Female
  Weight: 77.1 kg

DRUGS (4)
  1. ARIMIDEX [Suspect]
     Indication: BREAST CANCER
     Route: 048
     Dates: start: 20030401
  2. DIGOXIN [Concomitant]
  3. BLOOD PRESSURE PILL [Concomitant]
  4. XANAX [Concomitant]

REACTIONS (5)
  - ABASIA [None]
  - ANGIOPATHY [None]
  - HYPERTENSION [None]
  - PAIN IN EXTREMITY [None]
  - SPINAL COLUMN STENOSIS [None]
